FAERS Safety Report 19109972 (Version 1)
Quarter: 2021Q2

REPORT INFORMATION
  Report Type: Spontaneous
  Country: NO (occurrence: NO)
  Receive Date: 20210408
  Receipt Date: 20210408
  Transmission Date: 20210717
  Serious: Yes (Hospitalization)
  Sender: FDA-Public Use
  Company Number: NO-ABBVIE-21K-122-3848677-00

PATIENT
  Sex: Female

DRUGS (1)
  1. PROCRIN [Suspect]
     Active Substance: LEUPROLIDE ACETATE
     Indication: ADENOMYOSIS
     Route: 065

REACTIONS (6)
  - Fatigue [Unknown]
  - Uterine pain [Not Recovered/Not Resolved]
  - Haemorrhage [Recovered/Resolved]
  - Pain [Not Recovered/Not Resolved]
  - Frustration tolerance decreased [Unknown]
  - Drug ineffective [Unknown]
